FAERS Safety Report 7215071-7 (Version None)
Quarter: 2011Q1

REPORT INFORMATION
  Report Type: 
  Country: None (occurrence: None)
  Receive Date: 20110107
  Receipt Date: 20100805
  Transmission Date: 20110831
  Serious: No
  Sender: FDA-Public Use
  Company Number: A0874206A

PATIENT
  Age: 68 Year
  Sex: Male

DRUGS (4)
  1. LOVAZA [Suspect]
     Dosage: 1CAP AT NIGHT
     Route: 048
     Dates: start: 20100501, end: 20100701
  2. ANTI-CHOLESTEROL MEDICATION [Concomitant]
     Route: 048
  3. MULTIVITAMIN [Concomitant]
  4. FISH OIL [Concomitant]
     Route: 048

REACTIONS (3)
  - ABDOMINAL PAIN [None]
  - PAIN [None]
  - ABDOMINAL PAIN UPPER [None]
